FAERS Safety Report 7298583-X (Version None)
Quarter: 2011Q1

REPORT INFORMATION
  Report Type: 
  Country: None (occurrence: None)
  Receive Date: 20110217
  Receipt Date: 20110210
  Transmission Date: 20110831
  Serious: Yes (Other)
  Sender: FDA-Public Use
  Company Number: FR-JNJFOC-20110201962

PATIENT
  Sex: Male

DRUGS (3)
  1. MICONAZOLE [Suspect]
     Route: 065
  2. TROMEXANE [Interacting]
     Indication: ILL-DEFINED DISORDER
     Dosage: 2 YEARS
     Route: 065
  3. MICONAZOLE [Suspect]
     Indication: ILL-DEFINED DISORDER
     Dosage: FEW DAYS
     Route: 065

REACTIONS (4)
  - PROTHROMBIN LEVEL ABNORMAL [None]
  - HAEMATURIA [None]
  - DRUG INTERACTION [None]
  - RETROPERITONEAL HAEMATOMA [None]
